FAERS Safety Report 6064595-7 (Version None)
Quarter: 2009Q1

REPORT INFORMATION
  Report Type: 
  Country: None (occurrence: None)
  Receive Date: 20090204
  Receipt Date: 20090130
  Transmission Date: 20090719
  Serious: Yes (Other)
  Sender: FDA-Public Use
  Company Number: B0556518A

PATIENT
  Sex: Male

DRUGS (4)
  1. RELENZA [Suspect]
     Indication: INFLUENZA
     Dosage: 10MG PER DAY
     Route: 055
     Dates: start: 20090124, end: 20090125
  2. ZADITEN [Concomitant]
     Dosage: .2MG PER DAY
     Route: 048
  3. MEDICON [Concomitant]
     Indication: COUGH
     Dosage: 30MG PER DAY
     Route: 048
  4. MUCODYNE [Concomitant]
     Indication: COUGH
     Dosage: 900MG PER DAY
     Route: 048

REACTIONS (2)
  - HALLUCINATION [None]
  - HALLUCINATION, AUDITORY [None]
